FAERS Safety Report 4862272-9 (Version None)
Quarter: 2005Q4

REPORT INFORMATION
  Report Type: 
  Country: None (occurrence: None)
  Receive Date: 20051201
  Receipt Date: 20050816
  Transmission Date: 20060501
  Serious: No
  Sender: FDA-Public Use
  Company Number: 2005PV001155

PATIENT
  Age: 50 Year
  Sex: Female
  Weight: 90.7194 kg

DRUGS (6)
  1. BYETTA [Suspect]
     Indication: DIABETES MELLITUS NON-INSULIN-DEPENDENT
     Dosage: 5 MCG; BIC; SC
     Route: 058
     Dates: start: 20050615, end: 20050719
  2. BYETTA [Suspect]
     Indication: DIABETES MELLITUS NON-INSULIN-DEPENDENT
     Dosage: 5 MCG; BIC; SC
     Route: 058
     Dates: start: 20050815, end: 20050822
  3. ESTROGEN PATCH [Concomitant]
  4. IMITREX [Concomitant]
  5. PREVACID [Concomitant]
  6. GLUCOPHAGE [Concomitant]

REACTIONS (6)
  - EYE PRURITUS [None]
  - FATIGUE [None]
  - HEADACHE [None]
  - LACRIMATION INCREASED [None]
  - NAUSEA [None]
  - URTICARIA [None]
